FAERS Safety Report 12633244 (Version 2)
Quarter: 2016Q3

REPORT INFORMATION
  Report Type: Spontaneous
  Country: US (occurrence: US)
  Receive Date: 20160808
  Receipt Date: 20160808
  Transmission Date: 20161109
  Serious: No
  Sender: FDA-Public Use
  Company Number: US-BEH-2016059905

PATIENT
  Sex: Female
  Weight: 74 kg

DRUGS (20)
  1. HYDROXYZINE [Concomitant]
     Active Substance: HYDROXYZINE\HYDROXYZINE HYDROCHLORIDE
  2. CONCERTA [Concomitant]
     Active Substance: METHYLPHENIDATE HYDROCHLORIDE
  3. IBUPROFEN. [Concomitant]
     Active Substance: IBUPROFEN
  4. DIPHENHYDRAMINE. [Concomitant]
     Active Substance: DIPHENHYDRAMINE
  5. LIDOCAINE. [Concomitant]
     Active Substance: LIDOCAINE
  6. LANSOPRAZOLE. [Concomitant]
     Active Substance: LANSOPRAZOLE
  7. PROGESTERONE. [Concomitant]
     Active Substance: PROGESTERONE
  8. ABILIFY [Concomitant]
     Active Substance: ARIPIPRAZOLE
  9. HIZENTRA [Suspect]
     Active Substance: HUMAN IMMUNOGLOBULIN G
     Route: 058
     Dates: start: 20160105
  10. PROVENTIL [Concomitant]
     Active Substance: ALBUTEROL
  11. LEVOTHYROXINE. [Concomitant]
     Active Substance: LEVOTHYROXINE
  12. ACETAMINOPHEN. [Concomitant]
     Active Substance: ACETAMINOPHEN
  13. CYMBALTA [Concomitant]
     Active Substance: DULOXETINE HYDROCHLORIDE
  14. HIZENTRA [Suspect]
     Active Substance: HUMAN IMMUNOGLOBULIN G
     Indication: IMMUNODEFICIENCY COMMON VARIABLE
     Route: 058
     Dates: start: 20160105
  15. EPIPEN [Concomitant]
     Active Substance: EPINEPHRINE
  16. MONTELUKAST [Concomitant]
     Active Substance: MONTELUKAST SODIUM
  17. CLONAZEPAM. [Concomitant]
     Active Substance: CLONAZEPAM
  18. ATORVASTATIN [Concomitant]
     Active Substance: ATORVASTATIN
  19. LAMOTRIGINE. [Concomitant]
     Active Substance: LAMOTRIGINE
  20. QVAR [Concomitant]
     Active Substance: BECLOMETHASONE DIPROPIONATE

REACTIONS (2)
  - Administration site swelling [Unknown]
  - Varicose vein [Unknown]
